FAERS Safety Report 13700844 (Version 1)
Quarter: 2017Q2

REPORT INFORMATION
  Report Type: Spontaneous
  Country: BR (occurrence: BR)
  Receive Date: 20170629
  Receipt Date: 20170629
  Transmission Date: 20170830
  Serious: Yes (Life-Threatening, Hospitalization)
  Sender: FDA-Public Use
  Company Number: BR-BRACCO-000739

PATIENT
  Age: 52 Year
  Sex: Female
  Weight: 64 kg

DRUGS (11)
  1. TAZOBACTAM [Concomitant]
     Active Substance: TAZOBACTAM
     Route: 042
     Dates: start: 20170512
  2. MEROPENEM. [Concomitant]
     Active Substance: MEROPENEM
  3. TRAMADOL. [Concomitant]
     Active Substance: TRAMADOL
     Route: 042
  4. ONDANSETRON [Concomitant]
     Active Substance: ONDANSETRON
     Route: 042
  5. SCOPOLAMINE [Concomitant]
     Active Substance: SCOPOLAMINE
     Route: 042
  6. IOPAMIRON [Suspect]
     Active Substance: IOPAMIDOL
     Indication: COMPUTERISED TOMOGRAM PELVIS
     Route: 042
     Dates: start: 20170518, end: 20170518
  7. PIPERACILLIN [Concomitant]
     Active Substance: PIPERACILLIN
     Route: 042
     Dates: start: 20170512
  8. OMEPRAZOLE. [Concomitant]
     Active Substance: OMEPRAZOLE
     Route: 042
  9. DIPYRONE [Concomitant]
     Active Substance: DIPYRONE
     Route: 042
  10. ENOXAPARINA [Concomitant]
     Active Substance: ENOXAPARIN
     Route: 058
  11. METOCLOPRAMIDE. [Concomitant]
     Active Substance: METOCLOPRAMIDE
     Route: 042

REACTIONS (6)
  - Pyelonephritis [Recovered/Resolved]
  - Deep vein thrombosis [Recovered/Resolved]
  - Vaginal fistula [Recovered/Resolved]
  - Hypersensitivity [Recovered/Resolved]
  - Ventricular fibrillation [Recovered/Resolved]
  - Renal abscess [Recovered/Resolved]

NARRATIVE: CASE EVENT DATE: 20170518
